FAERS Safety Report 13594120 (Version 3)
Quarter: 2017Q3

REPORT INFORMATION
  Report Type: Spontaneous
  Country: US (occurrence: US)
  Receive Date: 20170530
  Receipt Date: 20170818
  Transmission Date: 20171127
  Serious: No
  Sender: FDA-Public Use
  Company Number: US-PFIZER INC-2017235370

PATIENT
  Age: 68 Year
  Sex: Female
  Weight: 98 kg

DRUGS (4)
  1. CELECOXIB. [Suspect]
     Active Substance: CELECOXIB
     Indication: ARTHRITIS
     Dosage: 100 MG, 3X/DAY
     Dates: start: 201501
  2. HYDROCODONE/ACETAMINOPHEN [Concomitant]
     Active Substance: ACETAMINOPHEN\HYDROCODONE
     Indication: PAIN
     Dosage: UNK, AS NEEDED [5MG HYDROCODONE]/[325MG ACETAMINOPHEN] 1 TO 3 TIMES A DAYS AS NEEDED
     Route: 048
     Dates: start: 201501
  3. CELECOXIB. [Suspect]
     Active Substance: CELECOXIB
     Dosage: 100 MG, 2X/DAY
     Dates: start: 20170520
  4. CELECOXIB. [Suspect]
     Active Substance: CELECOXIB
     Dosage: 100 MG, 4X/DAY
     Dates: start: 20170523, end: 20170523

REACTIONS (6)
  - Gait disturbance [Unknown]
  - Muscle tightness [Not Recovered/Not Resolved]
  - Drug ineffective [Not Recovered/Not Resolved]
  - Intentional product misuse [Unknown]
  - Drug prescribing error [Unknown]
  - Alopecia [Recovering/Resolving]

NARRATIVE: CASE EVENT DATE: 20170520
